FAERS Safety Report 9681918 (Version 2)
Quarter: 2013Q4

REPORT INFORMATION
  Report Type: Spontaneous
  Country: FR (occurrence: FR)
  Receive Date: 20131111
  Receipt Date: 20131111
  Transmission Date: 20140711
  Serious: Yes (Hospitalization)
  Sender: FDA-Public Use
  Company Number: FR-TEVA-397168ISR

PATIENT
  Age: 54 Year
  Sex: Female

DRUGS (1)
  1. COTRIMOXAZOLE RATIOPHARM 800 MG/160 MG [Suspect]
     Indication: CYSTITIS
     Dosage: 1 DOSAGE FORMS DAILY; ONE UNIQUE INTAKE
     Route: 048

REACTIONS (4)
  - Drug eruption [Recovered/Resolved]
  - Erythema [Recovered/Resolved]
  - Mucosal erosion [Recovered/Resolved]
  - Palmar-plantar erythrodysaesthesia syndrome [Recovered/Resolved]
